FAERS Safety Report 8275013-2 (Version None)
Quarter: 2012Q2

REPORT INFORMATION
  Report Type: 
  Country: None (occurrence: None)
  Receive Date: 20120411
  Receipt Date: 20120403
  Transmission Date: 20120825
  Serious: Yes (Hospitalization)
  Sender: FDA-Public Use
  Company Number: PHHO2012DE004415

PATIENT
  Sex: Female
  Weight: 65 kg

DRUGS (2)
  1. NO TREATMENT RECEIVED [Suspect]
     Indication: BREAST CANCER
     Dosage: NO TREATMENT
  2. TAMOXIFEN CITRATE [Suspect]
     Indication: BREAST CANCER
     Dosage: 20 MG, QD
     Route: 048
     Dates: start: 20110316, end: 20120305

REACTIONS (3)
  - VIITH NERVE PARALYSIS [None]
  - MONOPLEGIA [None]
  - MIGRAINE [None]
